FAERS Safety Report 12219105 (Version 1)
Quarter: 2016Q1

REPORT INFORMATION
  Report Type: Report from Study
  Country: US (occurrence: US)
  Receive Date: 20160329
  Receipt Date: 20160329
  Transmission Date: 20160526
  Serious: Yes (Hospitalization)
  Sender: FDA-Public Use
  Company Number: US-BECTON DICKINSON-2016BDN00046

PATIENT
  Age: 58 Year
  Sex: Male

DRUGS (6)
  1. SAGE 2% CHLORHEXIDINE GLUCONATE CLOTH [Suspect]
     Active Substance: CHLORHEXIDINE GLUCONATE
     Indication: INFECTION PROPHYLAXIS
  2. NORCO [Concomitant]
     Active Substance: ACETAMINOPHEN\HYDROCODONE BITARTRATE
     Dosage: 2 DOSAGE UNITS, 6X/DAY AS NEEDED FOR MODERATE TO SEVERE PAIN
  3. NORCO [Concomitant]
     Active Substance: ACETAMINOPHEN\HYDROCODONE BITARTRATE
     Dosage: 1 DOSAGE UNITS, 6X/DAY AS NEEDED FOR MILD PAIN
  4. CHLORAPREP [Suspect]
     Active Substance: CHLORHEXIDINE GLUCONATE\ISOPROPYL ALCOHOL
     Indication: INFECTION PROPHYLAXIS
  5. ALCOHOL. [Concomitant]
     Active Substance: ALCOHOL
     Dosage: UNK
     Dates: start: 20160301
  6. LEVOTHYROXINE. [Concomitant]
     Active Substance: LEVOTHYROXINE
     Dosage: 25 ?G, 1X/DAY
     Route: 048

REACTIONS (11)
  - Blood pressure decreased [None]
  - Bronchitis [None]
  - Aspartate aminotransferase increased [None]
  - Syncope [None]
  - Dehydration [None]
  - Upper respiratory tract infection [None]
  - Alcohol poisoning [None]
  - Hospitalisation [Recovered/Resolved]
  - Chronic obstructive pulmonary disease [None]
  - Electrocardiogram PR prolongation [None]
  - Hyponatraemia [None]

NARRATIVE: CASE EVENT DATE: 20160301
